FAERS Safety Report 11929608 (Version 2)
Quarter: 2016Q1

REPORT INFORMATION
  Report Type: Report from Study
  Country: US (occurrence: US)
  Receive Date: 20160120
  Receipt Date: 20160130
  Transmission Date: 20160526
  Serious: No
  Sender: FDA-Public Use
  Company Number: PHEH2016US001251

PATIENT
  Sex: Male

DRUGS (3)
  1. GLEEVEC [Suspect]
     Active Substance: IMATINIB MESYLATE
     Indication: MANTLE CELL LYMPHOMA
     Dosage: 100 MG, QD
     Route: 048
  2. GLEEVEC [Suspect]
     Active Substance: IMATINIB MESYLATE
     Indication: NON-HODGKIN^S LYMPHOMA
  3. GLEEVEC [Suspect]
     Active Substance: IMATINIB MESYLATE
     Indication: SCLERODERMA

REACTIONS (1)
  - Off label use [Unknown]
